FAERS Safety Report 4378146-6 (Version None)
Quarter: 2004Q2

REPORT INFORMATION
  Report Type: 
  Country: None (occurrence: None)
  Receive Date: 20040616
  Receipt Date: 20040608
  Transmission Date: 20050107
  Serious: Yes (Other)
  Sender: FDA-Public Use
  Company Number: PHEH2004US06293

PATIENT
  Age: 69 Year
  Sex: Female

DRUGS (5)
  1. TRILEPTAL [Suspect]
     Indication: CONVULSION
     Dosage: 150 MG, BID
     Route: 048
     Dates: start: 20040524
  2. WARFARIN SODIUM [Concomitant]
     Dates: start: 20010101
  3. SYNTHROID [Concomitant]
     Dosage: 0.05 MCG, BID
     Dates: start: 20010101
  4. TOPROL-XL [Concomitant]
     Dosage: 200 MG, QD
     Dates: start: 20010101
  5. DIGITEK [Concomitant]
     Dosage: .25 MG, QD
     Dates: start: 20010101

REACTIONS (2)
  - CONDITION AGGRAVATED [None]
  - DEAFNESS [None]
